FAERS Safety Report 4375605-7 (Version None)
Quarter: 2004Q2

REPORT INFORMATION
  Report Type: 
  Country: None (occurrence: None)
  Receive Date: 20040607
  Receipt Date: 20040524
  Transmission Date: 20050107
  Serious: Yes (Other)
  Sender: FDA-Public Use
  Company Number: USA-2004-0015067

PATIENT
  Sex: Female

DRUGS (1)
  1. OXYCONTIN [Suspect]
     Indication: PAIN
     Dates: start: 20030701

REACTIONS (4)
  - ANAPHYLACTIC REACTION [None]
  - BLISTER [None]
  - CHEST DISCOMFORT [None]
  - TREMOR [None]
